FAERS Safety Report 7608431-3 (Version None)
Quarter: 2011Q3

REPORT INFORMATION
  Report Type: 
  Country: None (occurrence: None)
  Receive Date: 20110714
  Receipt Date: 20110701
  Transmission Date: 20111222
  Serious: No
  Sender: FDA-Public Use
  Company Number: US-B.I. PHARMACEUTICALS,INC./RIDGEFIELD-2011-BP-16786BP

PATIENT
  Sex: Male

DRUGS (4)
  1. PRADAXA [Suspect]
     Indication: ATRIAL FIBRILLATION
     Dosage: 300 MG
     Route: 048
     Dates: start: 20110617
  2. ALTACE [Concomitant]
     Indication: ATRIAL FIBRILLATION
  3. CRESTOR [Concomitant]
     Indication: BLOOD CHOLESTEROL INCREASED
  4. DIGOXIN [Concomitant]
     Indication: ATRIAL FIBRILLATION

REACTIONS (3)
  - ABNORMAL FAECES [None]
  - PROCTALGIA [None]
  - DIARRHOEA [None]
